FAERS Safety Report 16960873 (Version 2)
Quarter: 2019Q4

REPORT INFORMATION
  Report Type: Spontaneous
  Country: DE (occurrence: DE)
  Receive Date: 20191025
  Receipt Date: 20191122
  Transmission Date: 20200122
  Serious: Yes (Life-Threatening, Hospitalization, Other)
  Sender: FDA-Public Use
  Company Number: DE-NOVOPROD-690590

PATIENT
  Sex: Female

DRUGS (1)
  1. NOVORAPID [Suspect]
     Active Substance: INSULIN ASPART
     Indication: TYPE 1 DIABETES MELLITUS
     Dosage: UNK
     Route: 065
     Dates: start: 201908

REACTIONS (4)
  - Ketoacidosis [Unknown]
  - Product container issue [Unknown]
  - Hyperglycaemia [Unknown]
  - Diabetic hyperglycaemic coma [Unknown]

NARRATIVE: CASE EVENT DATE: 20190820
